FAERS Safety Report 13719732 (Version 1)
Quarter: 2017Q3

REPORT INFORMATION
  Report Type: Spontaneous
  Country: US (occurrence: US)
  Receive Date: 20170705
  Receipt Date: 20170705
  Transmission Date: 20171127
  Serious: No
  Sender: FDA-Public Use
  Company Number: US-ROCHE-1818851

PATIENT

DRUGS (3)
  1. CYTOVENE IV [Suspect]
     Active Substance: GANCICLOVIR SODIUM
     Indication: CYTOMEGALOVIRUS CHORIORETINITIS
     Route: 065
  2. CIDOFOVIR. [Concomitant]
     Active Substance: CIDOFOVIR
  3. FOSCARNET [Concomitant]
     Active Substance: FOSCARNET
     Route: 050

REACTIONS (2)
  - No adverse event [Unknown]
  - Drug ineffective [Unknown]
